FAERS Safety Report 6687162-0 (Version None)
Quarter: 2010Q2

REPORT INFORMATION
  Report Type: 
  Country: None (occurrence: None)
  Receive Date: 20100414
  Receipt Date: 20100331
  Transmission Date: 20101027
  Serious: Yes (Life-Threatening)
  Sender: FDA-Public Use
  Company Number: 1-22180229

PATIENT
  Age: 79 Year
  Sex: Male

DRUGS (8)
  1. FENTANYL INJECTABLE [Suspect]
     Indication: ANAESTHESIA
     Dosage: 0.2 MG, INTRAVENOUS
     Route: 042
     Dates: start: 20100318, end: 20100318
  2. DOXYCYCLINE [Suspect]
     Indication: INFECTION PROPHYLAXIS
     Dosage: 400 MG, ORAL
     Route: 048
     Dates: start: 20100318, end: 20100318
  3. THIOPENTAL INJECTION [Suspect]
     Indication: ANAESTHESIA
     Dosage: 200 MG, INTRAVENOUS
     Route: 042
     Dates: start: 20100318, end: 20100318
  4. NIMBEX [Suspect]
     Indication: ANAESTHESIA
     Dosage: 20 MG (AS 11 + 4 + 5 MG, INTRAVENOUS
     Route: 042
     Dates: start: 20100318, end: 20100318
  5. MIDAZOLAM HCL [Suspect]
     Indication: ANAESTHESIA
     Dosage: 2.5 MG, INTRAVENOUS
     Route: 042
     Dates: start: 20100318, end: 20100318
  6. RAMIPRIL [Concomitant]
  7. ALLOPUR (ALLOPURINOL) [Concomitant]
  8. CARVEDILOL [Concomitant]

REACTIONS (3)
  - ANAPHYLACTIC REACTION [None]
  - BRONCHOSPASM [None]
  - HYPOTENSION [None]
